FAERS Safety Report 16311806 (Version 1)
Quarter: 2019Q2

REPORT INFORMATION
  Report Type: Spontaneous
  Country: ES (occurrence: ES)
  Receive Date: 20190514
  Receipt Date: 20190514
  Transmission Date: 20190711
  Serious: Yes (Other)
  Sender: FDA-Public Use
  Company Number: PHHY2019ES106639

PATIENT
  Sex: Male
  Weight: 69 kg

DRUGS (3)
  1. MICARDIS [Concomitant]
     Active Substance: TELMISARTAN
     Indication: HYPERTENSION
     Dosage: 1 DF, QD (EVERY 24 HOURS)
     Route: 048
     Dates: start: 20170526
  2. CARDYL [Concomitant]
     Active Substance: ATORVASTATIN CALCIUM
     Indication: HYPERCHOLESTEROLAEMIA
     Dosage: 1 DF, QD (EVERY 24 HOURS)
     Route: 048
     Dates: start: 20170526
  3. TAMSULOSIN [Suspect]
     Active Substance: TAMSULOSIN
     Indication: BENIGN PROSTATIC HYPERPLASIA
     Dosage: 0.4 MG, UNK
     Route: 048
     Dates: start: 20170603, end: 20170915

REACTIONS (9)
  - Nocturia [Unknown]
  - Somnolence [Unknown]
  - Prostatism [Unknown]
  - Libido decreased [Recovering/Resolving]
  - Drug ineffective [Unknown]
  - Ejaculation failure [Unknown]
  - Pollakiuria [Recovered/Resolved]
  - Post micturition dribble [Recovered/Resolved]
  - Urine flow decreased [Recovered/Resolved]
